FAERS Safety Report 8282779-4 (Version None)
Quarter: 2012Q2

REPORT INFORMATION
  Report Type: 
  Country: None (occurrence: None)
  Receive Date: 20120410
  Receipt Date: 20120326
  Transmission Date: 20120825
  Serious: Yes (Congenital Anomaly)
  Sender: FDA-Public Use
  Company Number: A0972074A

PATIENT
  Sex: 0

DRUGS (21)
  1. ACETAMINOPHEN [Suspect]
     Dosage: UNK / UNK / UNKNOWN
  2. CITALOPRAM HYDROBROMIDE [Suspect]
     Dosage: UNK / UNK / UNKNOWN
  3. LACTULOSE [Suspect]
     Dosage: UNK / UNK / UNKNOWN
  4. HYDROXYZINE [Suspect]
     Indication: HYPEREMESIS GRAVIDARUM
     Dosage: 25 MG / FOUR TIMES PER DAY / TRANSP
     Route: 064
  5. RANITIDINE HYDROCHLORIDE [Suspect]
     Dosage: UNK / UNK / TRANSPLACENTARY
     Route: 064
  6. PANTOPRAZOLE [Suspect]
     Dosage: UNK / UNK / UNKNOWN
  7. HYDROMORPHONE HCL [Suspect]
     Dosage: UNK / UNK / UNKNOWN
  8. DIPHENHYDRAMINE HCL [Suspect]
     Indication: HYPEREMESIS GRAVIDARUM
     Dosage: 50 MG / FOUR TIMES PER DAY / TRANSP
  9. THIAMINE (FORMULATION UNKNOWN) (THIAMINE) [Suspect]
     Indication: HYPEREMESIS GRAVIDARUM
     Dosage: 100 MG / UNK / TRANSPLACENTARY
     Route: 064
  10. DOCUSATE SODIUM (FORMULATION UNKNOWN) (DOCUSATE SODIUM) [Suspect]
     Dosage: UNK / UNK / UNKNOWN
  11. ONDANSETRON HYDROCHLORIDE [Suspect]
     Indication: HYPEREMESIS GRAVIDARUM
     Dosage: UNK / UNK / TRANSPLACENTARY
     Route: 064
  12. DOMPERIDONE (FORMULATION UNKNOWN) (GENERIC) (DOMPERIDONE) [Suspect]
     Dosage: UNK / UNK / UNKNOWN
  13. METOCLOPRAMIDE [Suspect]
     Indication: HYPEREMESIS GRAVIDARUM
     Dosage: UNK / UNK / TRANSPLACENTARY
     Route: 064
  14. GLYCERIN (FORMULATION UNKNOWN) (GLYCERIN) [Suspect]
     Dosage: UNK / UNK / UNKNOWN
  15. PREDNISONE [Suspect]
     Dosage: UNK / UNK / UNKNOWN
  16. INDOMETHACIN [Suspect]
     Dosage: UNK / UNK / UNKNOWN
  17. MULTIVITAMIN [Suspect]
     Indication: HYPEREMESIS GRAVIDARUM
     Dosage: UNK / FOUR TIMES PER DAY / TRANSP
     Route: 064
  18. GINGER (FORMULATION UNKNOWN) (GINGER) [Suspect]
     Dosage: UNK / UNK / UNKNOWN
  19. OMEPRAZOLE [Suspect]
     Dosage: UNK / UNK / UNKNOWN
  20. CLOTRIMAZOLE [Suspect]
     Dosage: UNK / UNK / UNKNOWN
  21. METHYLPREDNISOLONE [Suspect]
     Dosage: UNK / UNK / UNKNOWN

REACTIONS (2)
  - MATERNAL DRUGS AFFECTING FOETUS [None]
  - CONGENITAL MUSCULOSKELETAL ANOMALY [None]
